FAERS Safety Report 9187445 (Version 1)
Quarter: 2013Q1

REPORT INFORMATION
  Report Type: Spontaneous
  Country: FR (occurrence: FR)
  Receive Date: 20130325
  Receipt Date: 20130325
  Transmission Date: 20140127
  Serious: Yes (Hospitalization)
  Sender: FDA-Public Use
  Company Number: FR-VERTEX PHARMACEUTICALS INC.-2013-004020

PATIENT
  Age: 62 Year
  Sex: Female

DRUGS (5)
  1. INCIVO [Suspect]
     Indication: HEPATITIS C
     Dosage: 750 MG, TID
     Route: 048
     Dates: start: 20121027, end: 20130118
  2. PEGASYS [Suspect]
     Indication: PRODUCT USED FOR UNKNOWN INDICATION
     Dosage: 180 ?G, QW (25.7143 UG)
     Route: 058
     Dates: start: 20121027, end: 20130121
  3. COPEGUS [Suspect]
     Indication: PRODUCT USED FOR UNKNOWN INDICATION
     Dosage: 1000 MG, QD
     Route: 048
     Dates: start: 20121027, end: 20130121
  4. SOTALEX [Concomitant]
     Indication: TACHYCARDIA
     Dosage: DOSAGE FORM: UNSPECIFIED
     Route: 065
  5. EPREX [Concomitant]
     Indication: PRODUCT USED FOR UNKNOWN INDICATION
     Dosage: 5714.285 IU, UNK
     Route: 058
     Dates: start: 20121130, end: 201212

REACTIONS (4)
  - Sepsis [Recovered/Resolved]
  - Drug reaction with eosinophilia and systemic symptoms [Recovered/Resolved]
  - Anaemia [Recovered/Resolved]
  - Thrombocytopenia [Recovered/Resolved]
